FAERS Safety Report 8000469-X (Version None)
Quarter: 2011Q4

REPORT INFORMATION
  Report Type: 
  Country: None (occurrence: None)
  Receive Date: 20111222
  Receipt Date: 20111031
  Transmission Date: 20120403
  Serious: No
  Sender: FDA-Public Use
  Company Number: US-BRISTOL-MYERS SQUIBB COMPANY-16206500

PATIENT
  Age: 55 Year
  Sex: Female
  Weight: 63 kg

DRUGS (1)
  1. PRAVACHOL [Suspect]
     Dosage: ININITAL 40MG STOPPED REDUCED TO 20MG/DAY AND STOPPED.NO OF COURSE-2.
     Dates: end: 20111027

REACTIONS (5)
  - DYSPNOEA [None]
  - COUGH [None]
  - CHEST DISCOMFORT [None]
  - HEART RATE INCREASED [None]
  - WHEEZING [None]
